FAERS Safety Report 8486990-9 (Version None)
Quarter: 2012Q3

REPORT INFORMATION
  Report Type: 
  Country: None (occurrence: None)
  Receive Date: 20120704
  Receipt Date: 20120627
  Transmission Date: 20120928
  Serious: Yes (Other)
  Sender: FDA-Public Use
  Company Number: PHHY2011DE79745

PATIENT
  Sex: Male

DRUGS (3)
  1. IMATINIB MESYLATE [Suspect]
     Indication: CHRONIC MYELOID LEUKAEMIA
     Dosage: 400 MG, UNK
     Route: 048
     Dates: start: 20020101
  2. MAGNESIUM DIASPORAL [Concomitant]
  3. ASPIRIN [Concomitant]

REACTIONS (3)
  - POLYNEUROPATHY [None]
  - PARAESTHESIA [None]
  - RESTLESS LEGS SYNDROME [None]
